FAERS Safety Report 7827078-7 (Version None)
Quarter: 2011Q4

REPORT INFORMATION
  Report Type: 
  Country: None (occurrence: None)
  Receive Date: 20111020
  Receipt Date: 20110404
  Transmission Date: 20120403
  Serious: No
  Sender: FDA-Public Use
  Company Number: US-BRISTOL-MYERS SQUIBB COMPANY-15652563

PATIENT
  Sex: Female

DRUGS (1)
  1. MEGACE ES [Suspect]
     Dosage: DOSAGE FORM:ORAL SUSPENSION

REACTIONS (1)
  - DRUG INEFFECTIVE [None]
